FAERS Safety Report 8131128-0 (Version None)
Quarter: 2012Q1

REPORT INFORMATION
  Report Type: 
  Country: None (occurrence: None)
  Receive Date: 20120213
  Receipt Date: 20120201
  Transmission Date: 20120608
  Serious: No
  Sender: FDA-Public Use
  Company Number: US-JNJFOC-20120201969

PATIENT
  Sex: Female
  Weight: 47.63 kg

DRUGS (4)
  1. FENTANYL-100 [Suspect]
     Indication: POST HERPETIC NEURALGIA
     Route: 062
     Dates: start: 20110101
  2. PROPAFENONE HCL [Concomitant]
     Indication: ATRIAL FIBRILLATION
     Dosage: 2 AT NIGHT
     Route: 048
  3. LYRICA [Concomitant]
     Indication: NEURALGIA
     Dosage: 2 AT NIGHT
     Route: 048
  4. LETROZOLE [Concomitant]
     Indication: BREAST CANCER
     Dosage: 2 AT NIGHT
     Route: 048

REACTIONS (2)
  - PRODUCT QUALITY ISSUE [None]
  - POOR QUALITY DRUG ADMINISTERED [None]
